FAERS Safety Report 12483767 (Version 3)
Quarter: 2016Q4

REPORT INFORMATION
  Report Type: Spontaneous
  Country: US (occurrence: US)
  Receive Date: 20160621
  Receipt Date: 20161024
  Transmission Date: 20170207
  Serious: No
  Sender: FDA-Public Use
  Company Number: US-PFIZER INC-2016283758

PATIENT
  Age: 69 Year
  Sex: Female

DRUGS (2)
  1. LETROZOLE. [Suspect]
     Active Substance: LETROZOLE
     Dosage: UNK
  2. IBRANCE [Suspect]
     Active Substance: PALBOCICLIB
     Dosage: 125 MG, UNK
     Dates: start: 20160520

REACTIONS (6)
  - Arthralgia [Unknown]
  - Depression [Unknown]
  - White blood cell count decreased [Unknown]
  - Back pain [Unknown]
  - Fatigue [Unknown]
  - Night sweats [Unknown]
